FAERS Safety Report 23788669 (Version 1)
Quarter: 2024Q2

REPORT INFORMATION
  Report Type: Spontaneous
  Country: US (occurrence: US)
  Receive Date: 20240426
  Receipt Date: 20240426
  Transmission Date: 20240716
  Serious: No
  Sender: FDA-Public Use
  Company Number: US-009507513-2404USA008659

PATIENT
  Age: 44 Year
  Sex: Female

DRUGS (3)
  1. NOXAFIL [Suspect]
     Active Substance: POSACONAZOLE
     Indication: Mucormycosis
     Route: 048
  2. MICAFUNGIN [Concomitant]
     Active Substance: MICAFUNGIN SODIUM
  3. AMPHOTERICIN B [Concomitant]
     Active Substance: AMPHOTERICIN B
     Route: 042

REACTIONS (1)
  - Product use in unapproved indication [Unknown]
